FAERS Safety Report 10189559 (Version 2)
Quarter: 2014Q2

REPORT INFORMATION
  Report Type: Spontaneous
  Country: US (occurrence: US)
  Receive Date: 20140522
  Receipt Date: 20140522
  Transmission Date: 20141212
  Serious: No
  Sender: FDA-Public Use
  Company Number: US-ASTRAZENECA-2013SE68960

PATIENT
  Age: 452 Month
  Sex: Female
  Weight: 59 kg

DRUGS (3)
  1. PULMICORT FLEXHALER [Suspect]
     Indication: ASTHMA
     Dosage: 180MCG BID
     Route: 055
     Dates: start: 20130905
  2. PULMICORT FLEXHALER [Suspect]
     Indication: ASTHMA
     Dosage: 180MCG BID
     Route: 055
  3. ALLEGRA [Concomitant]
     Indication: MULTIPLE ALLERGIES

REACTIONS (2)
  - Wheezing [Not Recovered/Not Resolved]
  - Drug dose omission [Unknown]
